FAERS Safety Report 25381643 (Version 1)
Quarter: 2025Q2

REPORT INFORMATION
  Report Type: Spontaneous
  Country: DE (occurrence: DE)
  Receive Date: 20250531
  Receipt Date: 20250531
  Transmission Date: 20250716
  Serious: Yes (Other)
  Sender: CELLTRION
  Company Number: DE-SANDOZ-SDZ2024DE098532

PATIENT

DRUGS (1)
  1. ADALIMUMAB [Suspect]
     Active Substance: ADALIMUMAB
     Indication: Product used for unknown indication
     Route: 065

REACTIONS (4)
  - Chronic recurrent multifocal osteomyelitis [Unknown]
  - Acne conglobata [Unknown]
  - Psoriasis [Unknown]
  - Product substitution [Unknown]
